FAERS Safety Report 23987687 (Version 2)
Quarter: 2025Q3

REPORT INFORMATION
  Report Type: Spontaneous
  Country: CN (occurrence: CN)
  Receive Date: 20240619
  Receipt Date: 20250703
  Transmission Date: 20251020
  Serious: Yes (Death, Hospitalization, Other)
  Sender: Steriscience PTE
  Company Number: CN-STERISCIENCE B.V.-2024-ST-000841

PATIENT
  Age: 63 Year
  Sex: Male

DRUGS (2)
  1. METOPROLOL [Suspect]
     Active Substance: METOPROLOL
     Indication: Acute myocardial infarction
     Route: 065
  2. RETEPLASE [Suspect]
     Active Substance: RETEPLASE
     Indication: Acute myocardial infarction
     Route: 065

REACTIONS (1)
  - Cerebral haemorrhage [Fatal]
